FAERS Safety Report 7099824-4 (Version None)
Quarter: 2010Q4

REPORT INFORMATION
  Report Type: 
  Country: None (occurrence: None)
  Receive Date: 20101105
  Receipt Date: 20101025
  Transmission Date: 20110411
  Serious: Yes (Other)
  Sender: FDA-Public Use
  Company Number: 2010P1002002

PATIENT
  Age: 42 Year
  Sex: Female

DRUGS (3)
  1. ROCURONIUM BROMIDE [Suspect]
     Indication: ENDOBRONCHIAL VALVE IMPLANTATION
     Dosage: ; X1; IV
     Route: 042
     Dates: start: 20101007, end: 20101007
  2. ROCURONIUM BROMIDE [Suspect]
     Indication: PARALYSIS
     Dosage: ; X1; IV
     Route: 042
     Dates: start: 20101007, end: 20101007
  3. ROCURONIUM BROMIDE [Suspect]
     Indication: SURGERY
     Dosage: ; X1; IV
     Route: 042
     Dates: start: 20101007, end: 20101007

REACTIONS (2)
  - NEUROMUSCULAR BLOCK PROLONGED [None]
  - PARALYSIS [None]
